FAERS Safety Report 17284170 (Version 1)
Quarter: 2020Q1

REPORT INFORMATION
  Report Type: Spontaneous
  Country: JP (occurrence: JP)
  Receive Date: 20200117
  Receipt Date: 20200117
  Transmission Date: 20200409
  Serious: Yes (Death)
  Sender: FDA-Public Use
  Company Number: JP-EISAI MEDICAL RESEARCH-EC-2020-068597

PATIENT
  Age: 76 Year
  Sex: Female

DRUGS (2)
  1. LENVIMA [Suspect]
     Active Substance: LENVATINIB
     Route: 048
     Dates: start: 20170523, end: 20170604
  2. LENVIMA [Suspect]
     Active Substance: LENVATINIB
     Indication: MEDULLARY THYROID CANCER
     Route: 048
     Dates: start: 20170501, end: 20170522

REACTIONS (10)
  - Hypertension [Unknown]
  - Mouth haemorrhage [Unknown]
  - Anaemia [Unknown]
  - Dyspnoea [Unknown]
  - Death [Fatal]
  - Proteinuria [Unknown]
  - Pharyngeal stenosis [Unknown]
  - Localised oedema [Unknown]
  - Palmar-plantar erythrodysaesthesia syndrome [Unknown]
  - Platelet count decreased [Unknown]

NARRATIVE: CASE EVENT DATE: 20170523
